FAERS Safety Report 7885361-3 (Version None)
Quarter: 2011Q4

REPORT INFORMATION
  Report Type: 
  Country: None (occurrence: None)
  Receive Date: 20111102
  Receipt Date: 20111031
  Transmission Date: 20120403
  Serious: No
  Sender: FDA-Public Use
  Company Number: US-PFIZER INC-2011265721

PATIENT
  Sex: Female

DRUGS (3)
  1. LIPITOR [Suspect]
     Indication: BLOOD CHOLESTEROL INCREASED
     Dosage: 40 MG, 1X/DAY
     Route: 048
     Dates: start: 20110701
  2. MIRAPEX [Concomitant]
     Dosage: 0.5 MG, 1X/DAY
  3. ZESTORETIC [Concomitant]
     Indication: HYPERTENSION
     Dosage: 10 MG (LISINOPRIL)/12.5 MG (HCTZ), UNK

REACTIONS (1)
  - DYSPEPSIA [None]
